FAERS Safety Report 25452308 (Version 1)
Quarter: 2025Q2

REPORT INFORMATION
  Report Type: Spontaneous
  Country: US (occurrence: US)
  Receive Date: 20250618
  Receipt Date: 20250618
  Transmission Date: 20250717
  Serious: Yes (Hospitalization)
  Sender: AMGEN
  Company Number: US-AMGEN-USASP2025116653

PATIENT
  Sex: Female

DRUGS (1)
  1. IMDELLTRA [Suspect]
     Active Substance: TARLATAMAB-DLLE
     Indication: Small cell lung cancer
     Route: 065

REACTIONS (7)
  - Balance disorder [Unknown]
  - Movement disorder [Unknown]
  - Gait disturbance [Unknown]
  - Amnesia [Unknown]
  - Fatigue [Unknown]
  - Confusional state [Unknown]
  - Off label use [Unknown]

NARRATIVE: CASE EVENT DATE: 20250501
